FAERS Safety Report 25480309 (Version 1)
Quarter: 2025Q2

REPORT INFORMATION
  Report Type: Spontaneous
  Country: US (occurrence: US)
  Receive Date: 20250625
  Receipt Date: 20250625
  Transmission Date: 20250717
  Serious: No
  Sender: BANNER
  Company Number: BANN2400170

PATIENT

DRUGS (4)
  1. BAFIERTAM [Suspect]
     Active Substance: MONOMETHYL FUMARATE
     Indication: Multiple sclerosis
     Dates: start: 2024
  2. ZYRTEC [Concomitant]
     Active Substance: CETIRIZINE HYDROCHLORIDE
     Indication: Hypersensitivity
  3. DUPIXENT [Concomitant]
     Active Substance: DUPILUMAB
     Indication: Skin disorder
  4. RYALTRIS [Concomitant]
     Active Substance: MOMETASONE FUROATE MONOHYDRATE\OLOPATADINE HYDROCHLORIDE
     Indication: Product used for unknown indication

REACTIONS (3)
  - Flushing [Recovered/Resolved]
  - Product dose omission issue [Unknown]
  - Product use issue [Unknown]

NARRATIVE: CASE EVENT DATE: 20240627
